FAERS Safety Report 6340650-9 (Version None)
Quarter: 2009Q3

REPORT INFORMATION
  Report Type: 
  Country: None (occurrence: None)
  Receive Date: 20090904
  Receipt Date: 20090831
  Transmission Date: 20100115
  Serious: Yes (Hospitalization, Other)
  Sender: FDA-Public Use
  Company Number: US-BAYER-200914695NA

PATIENT
  Age: 84 Year
  Sex: Female
  Weight: 51 kg

DRUGS (22)
  1. NEXAVAR [Suspect]
     Indication: HEPATIC NEOPLASM MALIGNANT
     Dosage: TOTAL DAILY DOSE: 200 MG  UNIT DOSE: 200 MG
     Route: 048
     Dates: start: 20090222
  2. NEXAVAR [Suspect]
     Dosage: TOTAL DAILY DOSE: 400 MG  UNIT DOSE: 200 MG
     Route: 048
     Dates: start: 20090303, end: 20090301
  3. NEXAVAR [Suspect]
     Dosage: TOTAL DAILY DOSE: 200 MG  UNIT DOSE: 200 MG
     Route: 048
     Dates: start: 20090301
  4. NEXAVAR [Suspect]
     Dosage: TOTAL DAILY DOSE: 200 MG  UNIT DOSE: 200 MG
     Route: 048
  5. INSULIN [Concomitant]
  6. ADALAT CC [Concomitant]
  7. MICARDIS [Concomitant]
  8. HYDROCHLOROTHIAZIDE [Concomitant]
  9. TOPANOL [Concomitant]
  10. NOVOLOG [Concomitant]
  11. PANOKASE [Concomitant]
  12. OXYCODONE HCL [Concomitant]
  13. MULTI-VITAMINS [Concomitant]
  14. TOPROL-XL [Concomitant]
  15. SPIRONOLACTONE/HYDROCHLOROTHIAZIDE [Concomitant]
  16. HIPREX [Concomitant]
  17. HYDROXYZINE HCL [Concomitant]
  18. NEXIUM [Concomitant]
  19. CALCIUM [Concomitant]
  20. NAFTIN [Concomitant]
  21. AMOXICILLIN [Concomitant]
  22. PREMARIN [Concomitant]

REACTIONS (8)
  - DEEP VEIN THROMBOSIS [None]
  - DIARRHOEA [None]
  - HAEMATOCHEZIA [None]
  - PULMONARY EMBOLISM [None]
  - RASH MACULO-PAPULAR [None]
  - RENAL FAILURE ACUTE [None]
  - TUBULOINTERSTITIAL NEPHRITIS [None]
  - URINARY TRACT INFECTION [None]
